FAERS Safety Report 4644830-X (Version None)
Quarter: 2005Q2

REPORT INFORMATION
  Report Type: 
  Country: None (occurrence: None)
  Receive Date: 20050426
  Receipt Date: 20050418
  Transmission Date: 20051028
  Serious: Yes (Disabling)
  Sender: FDA-Public Use
  Company Number: US-MERCK-0504USA03283

PATIENT
  Age: 81 Year
  Sex: Female

DRUGS (6)
  1. ZOCOR [Suspect]
     Indication: BLOOD CHOLESTEROL INCREASED
     Route: 048
     Dates: start: 20040101
  2. EVISTA [Concomitant]
     Route: 065
  3. ZANTAC [Concomitant]
     Route: 065
  4. [THERAPY UNSPECIFIED] [Concomitant]
     Route: 065
  5. ASPERCREME [Concomitant]
     Route: 065
  6. DARVOCET-N 100 [Concomitant]
     Route: 065

REACTIONS (1)
  - PAIN IN EXTREMITY [None]
